FAERS Safety Report 4578873-1 (Version None)
Quarter: 2005Q1

REPORT INFORMATION
  Report Type: 
  Country: None (occurrence: None)
  Receive Date: 20050211
  Receipt Date: 20040429
  Transmission Date: 20050727
  Serious: Yes (Hospitalization)
  Sender: FDA-Public Use
  Company Number: GB-AMGEN-US075643

PATIENT
  Sex: Female

DRUGS (9)
  1. ENBREL [Suspect]
     Indication: RHEUMATOID ARTHRITIS
     Route: 058
     Dates: start: 20031124
  2. NORTRIPTYLINE HCL [Suspect]
     Route: 048
     Dates: start: 20030901
  3. OMEPRAZOLE [Concomitant]
     Dates: start: 20020101
  4. MELOXICAM [Concomitant]
     Dates: start: 20030701
  5. PREDNISOLONE [Concomitant]
     Dates: start: 19991101
  6. ESTRADERM [Concomitant]
     Route: 023
  7. METHOTREXATE [Concomitant]
  8. SULFASALAZINE [Concomitant]
  9. CO-CODAMOL [Concomitant]

REACTIONS (6)
  - ATRIAL FIBRILLATION [None]
  - ATRIAL FLUTTER [None]
  - CHEST PAIN [None]
  - DYSPNOEA [None]
  - PALPITATIONS [None]
  - SINUS TACHYCARDIA [None]
